FAERS Safety Report 14698265 (Version 2)
Quarter: 2019Q1

REPORT INFORMATION
  Report Type: Report from Study
  Country: DE (occurrence: DE)
  Receive Date: 20180330
  Receipt Date: 20190121
  Transmission Date: 20190417
  Serious: Yes (Hospitalization, Other)
  Sender: FDA-Public Use
  Company Number: DE-BRISTOL-MYERS SQUIBB COMPANY-BMS-2017-121584

PATIENT
  Sex: Female
  Weight: 75 kg

DRUGS (3)
  1. NIVOLUMAB [Suspect]
     Active Substance: NIVOLUMAB
     Indication: METASTATIC RENAL CELL CARCINOMA
     Dosage: 3 MG/KG, UNK
     Route: 042
  2. VOTRIENT [Suspect]
     Active Substance: PAZOPANIB HYDROCHLORIDE
     Indication: METASTATIC RENAL CELL CARCINOMA
     Dosage: 800 MG, QD
     Route: 048
     Dates: start: 20170123, end: 20170517
  3. VERGENTAN [Concomitant]
     Active Substance: ALIZAPRIDE HYDROCHLORIDE
     Indication: PROPHYLAXIS
     Dosage: 100 MG, QMO
     Route: 042
     Dates: start: 20170127

REACTIONS (17)
  - Diverticulitis [Recovered/Resolved]
  - Eczema [Unknown]
  - Nasopharyngitis [Recovered/Resolved]
  - Back pain [Unknown]
  - Infection [Recovered/Resolved]
  - Pain in extremity [Recovered/Resolved]
  - Abdominal distension [Unknown]
  - Pelvic pain [Recovered/Resolved]
  - Headache [Not Recovered/Not Resolved]
  - Abscess [Recovered/Resolved]
  - Peritonitis [Recovered/Resolved]
  - Ageusia [Unknown]
  - Mucosal inflammation [Recovered/Resolved]
  - Asthma [Unknown]
  - Abdominal pain lower [Unknown]
  - Blood pressure fluctuation [Recovered/Resolved]
  - Diarrhoea [Not Recovered/Not Resolved]

NARRATIVE: CASE EVENT DATE: 20170131
